FAERS Safety Report 5025016-6 (Version None)
Quarter: 2006Q2

REPORT INFORMATION
  Report Type: 
  Country: None (occurrence: None)
  Receive Date: 20060607
  Receipt Date: 20060530
  Transmission Date: 20061013
  Serious: Yes (Disabling, Other)
  Sender: FDA-Public Use
  Company Number: 2006069277

PATIENT
  Age: 24 Year
  Sex: Female
  Weight: 55 kg

DRUGS (2)
  1. NICORETTE [Suspect]
     Indication: SMOKING CESSATION THERAPY
     Dosage: 10 MG, TRANSDERMAL
     Route: 062
     Dates: start: 20060510, end: 20060510
  2. DESLORATADINE (DESLORATADINE) [Suspect]
     Indication: SEASONAL ALLERGY
     Dosage: 5 MG, ORAL
     Route: 048
     Dates: start: 20060510, end: 20060510

REACTIONS (2)
  - HYPERSENSITIVITY [None]
  - SWELLING FACE [None]
